FAERS Safety Report 8822333 (Version 2)
Quarter: 2012Q4

REPORT INFORMATION
  Report Type: 
  Country: US (occurrence: US)
  Receive Date: 20121003
  Receipt Date: 20121213
  Transmission Date: 20130627
  Serious: Yes (Other)
  Sender: FDA-Public Use
  Company Number: US-NOVOPROD-360836

PATIENT
  Age: 68 Year
  Sex: Female
  Weight: 86.17 kg

DRUGS (3)
  1. NOVOLOG FLEXPEN [Suspect]
     Indication: DIABETES MELLITUS
     Dosage: Sliding scale
     Route: 058
     Dates: start: 201206
  2. LANTUS [Suspect]
     Indication: DIABETES MELLITUS
     Dosage: 44 to 55 U, qd
     Route: 058
     Dates: start: 2003
  3. PROAIR                             /00139502/ [Concomitant]
     Indication: ASTHMA
     Dosage: UNK

REACTIONS (2)
  - Vitreous haemorrhage [Recovering/Resolving]
  - Feeling abnormal [Unknown]
